FAERS Safety Report 9086857 (Version 3)
Quarter: 2013Q1

REPORT INFORMATION
  Report Type: Report from Study
  Country: CZ (occurrence: CZ)
  Receive Date: 20130217
  Receipt Date: 20130325
  Transmission Date: 20140127
  Serious: Yes (Hospitalization)
  Sender: FDA-Public Use
  Company Number: CZ-JNJFOC-20130202297

PATIENT
  Age: 61 Year
  Sex: Female
  Weight: 84 kg

DRUGS (13)
  1. USTEKINUMAB [Suspect]
     Indication: PSORIASIS
     Route: 058
     Dates: start: 201202
  2. CHLORDIAZEPOXIDE [Concomitant]
  3. KYLOTAN [Concomitant]
  4. CYNT [Concomitant]
  5. TULIP [Concomitant]
  6. SIOFOR [Concomitant]
  7. ABILIFY [Concomitant]
  8. MILURIT [Concomitant]
  9. FURON [Concomitant]
  10. GLIMEPIRIDE [Concomitant]
  11. BISOPROLOL [Concomitant]
  12. AMLODIPINE [Concomitant]
  13. NEOTIGASON [Concomitant]

REACTIONS (2)
  - Transitional cell carcinoma [Recovered/Resolved with Sequelae]
  - Endometrial adenocarcinoma [Recovered/Resolved with Sequelae]
